FAERS Safety Report 19861447 (Version 3)
Quarter: 2021Q4

REPORT INFORMATION
  Report Type: Spontaneous
  Country: CZ (occurrence: CZ)
  Receive Date: 20210921
  Receipt Date: 20211019
  Transmission Date: 20220303
  Serious: Yes (Other)
  Sender: FDA-Public Use
  Company Number: CZ-ASTELLAS-2021US035053

PATIENT
  Age: 74 Year
  Sex: Female

DRUGS (6)
  1. TACROLIMUS [Suspect]
     Active Substance: TACROLIMUS
     Indication: Renal transplant
     Route: 065
     Dates: start: 20180216, end: 201802
  2. TACROLIMUS [Suspect]
     Active Substance: TACROLIMUS
     Route: 065
     Dates: start: 201802, end: 20180227
  3. MYCOPHENOLATE MOFETIL [Suspect]
     Active Substance: MYCOPHENOLATE MOFETIL
     Indication: Renal transplant
     Dosage: UNK UNK, UNKNOWN FREQ.
     Route: 065
     Dates: start: 201802
  4. PREDNISONE [Suspect]
     Active Substance: PREDNISONE
     Indication: Renal transplant
     Dosage: UNK UNK, UNKNOWN FREQ.
     Route: 065
     Dates: start: 201802
  5. THYMOGLOBULIN [Suspect]
     Active Substance: LAPINE T-LYMPHOCYTE IMMUNE GLOBULIN
     Indication: Renal transplant
     Dosage: UNK UNK, UNKNOWN FREQ.
     Route: 065
     Dates: start: 201802
  6. VALGANCICLOVIR [Concomitant]
     Active Substance: VALGANCICLOVIR
     Indication: Antiviral prophylaxis
     Route: 048
     Dates: start: 201802, end: 2018

REACTIONS (4)
  - Complications of transplanted kidney [Unknown]
  - Cytomegalovirus enteritis [Unknown]
  - Thrombotic microangiopathy [Recovered/Resolved]
  - Immunosuppressant drug level [Unknown]

NARRATIVE: CASE EVENT DATE: 20180201
